FAERS Safety Report 21991619 (Version 6)
Quarter: 2023Q2

REPORT INFORMATION
  Report Type: Report from Study
  Country: US (occurrence: US)
  Receive Date: 20230214
  Receipt Date: 20230610
  Transmission Date: 20230722
  Serious: No
  Sender: FDA-Public Use
  Company Number: US-002147023-NVSC2023US033930

PATIENT
  Sex: Female

DRUGS (1)
  1. KISQALI [Suspect]
     Active Substance: RIBOCICLIB
     Indication: Product used for unknown indication
     Dosage: 600 MG, QD
     Route: 048

REACTIONS (12)
  - Dermatitis acneiform [Unknown]
  - Musculoskeletal chest pain [Unknown]
  - Eye pruritus [Unknown]
  - Eye irritation [Unknown]
  - White blood cell count decreased [Unknown]
  - Back pain [Unknown]
  - Pruritus [Unknown]
  - Dry eye [Unknown]
  - Red blood cell count decreased [Unknown]
  - Fatigue [Unknown]
  - Rash pruritic [Unknown]
  - Rash macular [Unknown]
